FAERS Safety Report 4705919-X (Version None)
Quarter: 2005Q2

REPORT INFORMATION
  Report Type: 
  Country: None (occurrence: None)
  Receive Date: 20050630
  Receipt Date: 20050103
  Transmission Date: 20051028
  Serious: Yes (Death, Hospitalization)
  Sender: FDA-Public Use
  Company Number: 9604

PATIENT
  Age: 64 Year
  Sex: Male

DRUGS (5)
  1. DAUNORUBICIN HCL [Suspect]
     Indication: ACUTE MYELOID LEUKAEMIA
     Dosage: 240 MG/M2
     Dates: start: 20041120
  2. CYTARABINE [Suspect]
     Indication: ACUTE MYELOID LEUKAEMIA
     Dosage: 1260 MG
     Dates: start: 20041124
  3. LY335979 [Suspect]
     Indication: ACUTE MYELOID LEUKAEMIA
     Dosage: 550 MG
     Dates: start: 20041117
  4. CIPROFLOXACIN [Concomitant]
  5. ITRACONAZOLE [Concomitant]

REACTIONS (8)
  - CONDITION AGGRAVATED [None]
  - CONFUSIONAL STATE [None]
  - FEBRILE NEUTROPENIA [None]
  - LOBAR PNEUMONIA [None]
  - LUNG CONSOLIDATION [None]
  - PNEUMONITIS [None]
  - SEPTIC SHOCK [None]
  - THERAPY NON-RESPONDER [None]
